FAERS Safety Report 8476646-0 (Version None)
Quarter: 2012Q2

REPORT INFORMATION
  Report Type: 
  Country: None (occurrence: None)
  Receive Date: 20120628
  Receipt Date: 20120621
  Transmission Date: 20120825
  Serious: Yes (Other)
  Sender: FDA-Public Use
  Company Number: JP-PFIZER INC-2012146718

PATIENT
  Sex: Male

DRUGS (15)
  1. VOLTAREN [Concomitant]
  2. NEUROTROPIN [Concomitant]
  3. CONIEL [Concomitant]
     Dosage: UNK
     Route: 048
  4. METFORMIN HCL [Concomitant]
     Dosage: UNK
     Route: 048
  5. LOSARTAN POTASSIUM AND HYDROCHLOROTHIAZIDE [Concomitant]
     Dosage: UNK
     Route: 048
  6. LYRICA [Suspect]
     Indication: PAIN
     Dosage: 75 MG, 1X/DAY
     Route: 048
  7. TRAMADOL HYDROCHLORIDE/ACETAMINOPHEN [Concomitant]
     Indication: PAIN
     Dosage: UNK
  8. SITAGLIPTIN PHOSPHATE [Concomitant]
     Dosage: UNK
     Route: 048
  9. AMARYL [Concomitant]
     Dosage: UNK
     Route: 048
  10. ASPIRIN [Concomitant]
     Dosage: UNK
     Route: 048
  11. RABEPRAZOLE SODIUM [Concomitant]
     Dosage: UNK
     Route: 048
  12. LYRICA [Suspect]
     Dosage: 75 MG, 2X/DAY
     Route: 048
  13. CLONAZEPAM [Concomitant]
     Dosage: UNK
     Route: 048
  14. ANPLAG [Concomitant]
  15. VITAMIN B12 [Concomitant]
     Dosage: UNK
     Route: 048

REACTIONS (2)
  - ROAD TRAFFIC ACCIDENT [None]
  - LOSS OF CONSCIOUSNESS [None]
